FAERS Safety Report 6399435-X (Version None)
Quarter: 2009Q4

REPORT INFORMATION
  Report Type: 
  Country: None (occurrence: None)
  Receive Date: 20091014
  Receipt Date: 20091002
  Transmission Date: 20100525
  Serious: Yes (Other)
  Sender: FDA-Public Use
  Company Number: PHHY2009BR42736

PATIENT
  Age: 21 Year
  Sex: Female

DRUGS (2)
  1. PARLODEL [Suspect]
     Indication: BLOOD PROLACTIN ABNORMAL
     Dosage: 2.5 MG HALF TABLET AT NIGHT
     Route: 048
  2. PARLODEL [Suspect]
     Indication: BLOOD PROLACTIN ABNORMAL
     Dosage: 2.5 MG 1 CAPSULE AT NIGHT
     Route: 048
     Dates: start: 20090930

REACTIONS (8)
  - ABDOMINAL PAIN UPPER [None]
  - DIZZINESS [None]
  - DRUG DISPENSING ERROR [None]
  - FEELING ABNORMAL [None]
  - NAUSEA [None]
  - NECK PAIN [None]
  - SYNCOPE [None]
  - VOMITING [None]
